FAERS Safety Report 20644284 (Version 17)
Quarter: 2024Q1

REPORT INFORMATION
  Report Type: Other
  Country: CA (occurrence: None)
  Receive Date: 20220328
  Receipt Date: 20240326
  Transmission Date: 20240410
  Serious: Yes (Hospitalization, Other)
  Sender: FDA-Public Use
  Company Number: CA-ROCHE-2669128

PATIENT
  Sex: Male

DRUGS (11)
  1. OCREVUS [Suspect]
     Active Substance: OCRELIZUMAB
     Indication: Relapsing-remitting multiple sclerosis
     Dosage: 300 MG AT DAY 0 AND 14, THEN 600 MG EVERY 6 MONTH
     Route: 042
     Dates: start: 20200303
  2. OCREVUS [Suspect]
     Active Substance: OCRELIZUMAB
     Dosage: 600 MG EVERY 6 MONTH
     Route: 042
  3. EMGALITY [Concomitant]
     Active Substance: GALCANEZUMAB-GNLM
     Indication: Migraine
  4. CLOBAZAM [Concomitant]
     Active Substance: CLOBAZAM
  5. LAMOTRIGINE [Concomitant]
     Active Substance: LAMOTRIGINE
  6. BACLOFEN [Concomitant]
     Active Substance: BACLOFEN
  7. GABAPENTIN [Concomitant]
     Active Substance: GABAPENTIN
  8. GALCANEZUMAB [Concomitant]
     Active Substance: GALCANEZUMAB
  9. LEVOTHYROXINE [Concomitant]
     Active Substance: LEVOTHYROXINE\LEVOTHYROXINE SODIUM
  10. SOLIFENACIN [Concomitant]
     Active Substance: SOLIFENACIN
  11. BOTOX [Concomitant]
     Active Substance: ONABOTULINUMTOXINA

REACTIONS (25)
  - COVID-19 pneumonia [Recovered/Resolved]
  - Deafness [Recovered/Resolved]
  - Cough [Unknown]
  - Pyrexia [Unknown]
  - Nasal congestion [Recovered/Resolved]
  - Oropharyngeal pain [Recovered/Resolved]
  - Headache [Not Recovered/Not Resolved]
  - Myalgia [Recovered/Resolved]
  - Arthralgia [Recovered/Resolved]
  - Fatigue [Recovered/Resolved]
  - Diarrhoea [Recovered/Resolved]
  - Gait disturbance [Not Recovered/Not Resolved]
  - Fall [Unknown]
  - Clumsiness [Not Recovered/Not Resolved]
  - Muscle injury [Not Recovered/Not Resolved]
  - Musculoskeletal chest pain [Not Recovered/Not Resolved]
  - Back pain [Not Recovered/Not Resolved]
  - Migraine [Not Recovered/Not Resolved]
  - Pain [Not Recovered/Not Resolved]
  - Neuralgia [Not Recovered/Not Resolved]
  - Dry throat [Not Recovered/Not Resolved]
  - Ear pain [Recovered/Resolved]
  - Burning sensation [Recovering/Resolving]
  - Memory impairment [Not Recovered/Not Resolved]
  - Ear infection [Recovered/Resolved]
